FAERS Safety Report 6984037-4 (Version None)
Quarter: 2010Q3

REPORT INFORMATION
  Report Type: 
  Country: None (occurrence: None)
  Receive Date: 20100915
  Receipt Date: 20090511
  Transmission Date: 20110219
  Serious: No
  Sender: FDA-Public Use
  Company Number: US-WYE-H09327509

PATIENT
  Sex: Female

DRUGS (3)
  1. PRISTIQ [Suspect]
     Route: 048
  2. SEROQUEL [Suspect]
     Dosage: UNKNOWN
  3. SEROQUEL [Suspect]
     Dosage: INCREASED TO AN UNSPECIFIED DOSAGE

REACTIONS (2)
  - CONSTIPATION [None]
  - WEIGHT INCREASED [None]
